FAERS Safety Report 19737489 (Version 1)
Quarter: 2021Q3

REPORT INFORMATION
  Report Type: Spontaneous
  Country: US (occurrence: US)
  Receive Date: 20210820
  Receipt Date: 20210820
  Transmission Date: 20211014
  Serious: No
  Sender: FDA-Public Use
  Company Number: None

PATIENT
  Sex: Male

DRUGS (1)
  1. ABIRATERONE ACETATE 250 MG NOVADOZ PHARMACEUTICALS [Suspect]
     Active Substance: ABIRATERONE ACETATE
     Indication: PROSTATE CANCER
     Route: 048
     Dates: start: 20210407

REACTIONS (6)
  - Hypertension [None]
  - Hot flush [None]
  - Pain in extremity [None]
  - Pollakiuria [None]
  - Arthralgia [None]
  - Peripheral swelling [None]
